FAERS Safety Report 5419753-9 (Version None)
Quarter: 2007Q3

REPORT INFORMATION
  Report Type: 
  Country: None (occurrence: None)
  Receive Date: 20070815
  Receipt Date: 20070515
  Transmission Date: 20080115
  Serious: Yes (Other)
  Sender: FDA-Public Use
  Company Number: 2006VX000957

PATIENT
  Age: 68 Year
  Sex: Female
  Weight: 53.5 kg

DRUGS (7)
  1. TASMAR [Suspect]
     Indication: PARKINSON'S DISEASE
     Dosage: 100 MG; TID; PO;  100 MG; QD; PO
     Route: 048
     Dates: start: 20060301, end: 20060728
  2. TASMAR [Suspect]
     Indication: PARKINSON'S DISEASE
     Dosage: 100 MG; TID; PO;  100 MG; QD; PO
     Route: 048
     Dates: start: 20070406, end: 20070515
  3. L-DOPA [Concomitant]
  4. PROPRANOLOL [Concomitant]
  5. DOMPERIDONE [Concomitant]
  6. CARBIDOPA [Concomitant]
  7. CO-CARELDOPA [Concomitant]

REACTIONS (5)
  - CONDITION AGGRAVATED [None]
  - CONTUSION [None]
  - FALL [None]
  - HEPATIC FAILURE [None]
  - PARKINSON'S DISEASE [None]
